FAERS Safety Report 7806727-3 (Version None)
Quarter: 2011Q4

REPORT INFORMATION
  Report Type: 
  Country: None (occurrence: None)
  Receive Date: 20111011
  Receipt Date: 20111004
  Transmission Date: 20120403
  Serious: No
  Sender: FDA-Public Use
  Company Number: PHHY2011BR79057

PATIENT
  Sex: Male

DRUGS (4)
  1. TEGRETOL [Suspect]
     Indication: CONVULSION
     Dosage: 200 MG, (2 TABLETS A DAY)
     Route: 048
     Dates: start: 20060101, end: 20080101
  2. TEGRETOL [Suspect]
     Dosage: 400 MG, (2 TABLETS A DAY)
     Route: 048
     Dates: end: 20100101
  3. CARBAMAZEPINE [Suspect]
     Indication: CONVULSION
     Dosage: 100 MG, (2 TABLETS A DAY)
  4. PHENOBARBITAL TAB [Concomitant]
     Indication: CONVULSION
     Dosage: 100 MG,

REACTIONS (2)
  - DRUG INEFFECTIVE [None]
  - CONVULSION [None]
